FAERS Safety Report 9283911 (Version 1)
Quarter: 2013Q2

REPORT INFORMATION
  Report Type: Spontaneous
  Country: BR (occurrence: BR)
  Receive Date: 20130510
  Receipt Date: 20130510
  Transmission Date: 20140414
  Serious: Yes (Other)
  Sender: FDA-Public Use
  Company Number: PHHY2013BR012784

PATIENT
  Sex: Female

DRUGS (2)
  1. AMINOPHYLLINE SANDOZ [Suspect]
     Indication: ASTHMA
     Dosage: 0.2 G, Q6H
     Route: 048
     Dates: end: 201301
  2. AMINOPHYLLINE SANDOZ [Suspect]
     Indication: KERATOCONUS

REACTIONS (6)
  - Blindness [Recovering/Resolving]
  - Blister [Recovering/Resolving]
  - Depression [Recovering/Resolving]
  - Hypersensitivity [Unknown]
  - Dyspnoea [Unknown]
  - Asthma [Unknown]
